FAERS Safety Report 5754203-4 (Version None)
Quarter: 2008Q2

REPORT INFORMATION
  Report Type: 
  Country: None (occurrence: None)
  Receive Date: 20080530
  Receipt Date: 20080521
  Transmission Date: 20081010
  Serious: Yes (Other)
  Sender: FDA-Public Use
  Company Number: BR-AMGEN-US282596

PATIENT
  Sex: Female
  Weight: 78 kg

DRUGS (5)
  1. ENBREL [Suspect]
     Indication: PSORIASIS
     Route: 058
     Dates: start: 20070201, end: 20080401
  2. ENBREL [Suspect]
     Indication: ARTHRITIS
  3. PROPRANOLOL [Concomitant]
     Indication: HYPERTENSION
     Dosage: UNKNOWN DOSE ONCE DAILY
     Route: 048
     Dates: start: 20070101
  4. FERROUS SULFATE TAB [Concomitant]
     Indication: ANAEMIA
     Dosage: UNKNOWN DOSE; 1/2 TABLET DAILY
     Route: 048
  5. HYDROCHLOROTHIAZIDE [Concomitant]
     Indication: HYPERTENSION
     Route: 048
     Dates: start: 20030101

REACTIONS (7)
  - ANAEMIA [None]
  - CONDITION AGGRAVATED [None]
  - DRUG EFFECT DECREASED [None]
  - HAEMORRHAGE [None]
  - OVARIAN CYST [None]
  - PAIN [None]
  - PRURITUS [None]
